FAERS Safety Report 20977062 (Version 1)
Quarter: 2022Q2

REPORT INFORMATION
  Report Type: Report from Study
  Country: CO (occurrence: CO)
  Receive Date: 20220617
  Receipt Date: 20220617
  Transmission Date: 20220721
  Serious: Yes (Death, Hospitalization, Other)
  Sender: FDA-Public Use
  Company Number: CO-BAYER-2021A232776

PATIENT
  Age: 39 Year
  Sex: Female

DRUGS (14)
  1. ADEMPAS [Suspect]
     Active Substance: RIOCIGUAT
     Indication: Pulmonary hypertension
     Dosage: 1.0 MG, Q8HR
     Dates: start: 20190811, end: 20211202
  2. ADEMPAS [Suspect]
     Active Substance: RIOCIGUAT
     Indication: Pulmonary hypertension
     Dosage: 1.0 MG, Q8HR
  3. MIRENA [Suspect]
     Active Substance: LEVONORGESTREL
     Indication: Menstrual disorder
     Dosage: 20?G/DAY
     Route: 015
     Dates: start: 20211011
  4. FONDAPARINUX [Concomitant]
     Active Substance: FONDAPARINUX
     Dosage: 7.5 MG, QD
     Route: 058
     Dates: start: 2011, end: 202110
  5. FONDAPARINUX [Concomitant]
     Active Substance: FONDAPARINUX
     Dosage: 7.5 MG, QD
     Route: 058
     Dates: start: 20211021
  6. CALCIUM CARBONATE [Concomitant]
     Active Substance: CALCIUM CARBONATE
     Dosage: UNK
  7. MYCOPHENOLIC ACID [Concomitant]
     Active Substance: MYCOPHENOLIC ACID
     Indication: Systemic lupus erythematosus
     Dosage: UNK
  8. LANSOPRAZOLE [Concomitant]
     Active Substance: LANSOPRAZOLE
     Dosage: UNK
  9. ASCORBIC ACID;FOLIC ACID;IRON [Concomitant]
     Dosage: UNK
  10. HYDROXYCHLOROQUINE [Concomitant]
     Active Substance: HYDROXYCHLOROQUINE
     Dosage: UNK
  11. ENALAPRIL [Concomitant]
     Active Substance: ENALAPRIL
     Indication: Hypertension
     Dosage: UNK
  12. ATORVASTATIN [Concomitant]
     Active Substance: ATORVASTATIN
     Indication: Hypercholesterolaemia
     Dosage: UNK
  13. PREDNISOLONE [Concomitant]
     Active Substance: PREDNISOLONE
     Dosage: UNK
  14. FUROSEMIDE [Concomitant]
     Active Substance: FUROSEMIDE
     Indication: Fluid retention
     Dosage: UNK

REACTIONS (10)
  - Post procedural haemorrhage [Not Recovered/Not Resolved]
  - Gastritis [None]
  - Intra-abdominal fluid collection [Recovering/Resolving]
  - Ovarian cyst [None]
  - Vomiting [None]
  - Feeling abnormal [None]
  - Abdominal pain upper [None]
  - Depressed mood [Recovering/Resolving]
  - Endarterectomy [None]
  - Death [Fatal]

NARRATIVE: CASE EVENT DATE: 20211001
